FAERS Safety Report 23783323 (Version 1)
Quarter: 2024Q2

REPORT INFORMATION
  Report Type: Spontaneous
  Country: KR (occurrence: KR)
  Receive Date: 20240425
  Receipt Date: 20240425
  Transmission Date: 20240716
  Serious: No
  Sender: FDA-Public Use
  Company Number: KR-PFIZER INC-PV202400045648

PATIENT
  Age: 5 Year
  Sex: Male

DRUGS (1)
  1. GENOTROPIN [Suspect]
     Active Substance: SOMATROPIN
     Dosage: 2 IU, 6 TIMES WEEKLY

REACTIONS (2)
  - Injection site pain [Unknown]
  - Product prescribing error [Unknown]
